FAERS Safety Report 8156307-8 (Version None)
Quarter: 2012Q1

REPORT INFORMATION
  Report Type: 
  Country: None (occurrence: None)
  Receive Date: 20120222
  Receipt Date: 20110425
  Transmission Date: 20120608
  Serious: No
  Sender: FDA-Public Use
  Company Number: US-BRISTOL-MYERS SQUIBB COMPANY-15680655

PATIENT

DRUGS (1)
  1. KENALOG [Suspect]
     Indication: RHEUMATOID ARTHRITIS
     Dosage: ROUTE:Z TRACK
     Dates: start: 20110325

REACTIONS (1)
  - MEDICATION ERROR [None]
